FAERS Safety Report 4851534-7 (Version None)
Quarter: 2005Q4

REPORT INFORMATION
  Report Type: 
  Country: None (occurrence: None)
  Receive Date: 20051212
  Receipt Date: 20051129
  Transmission Date: 20060501
  Serious: Yes (Disabling)
  Sender: FDA-Public Use
  Company Number: BE-ROCHE-426417

PATIENT
  Age: 43 Year
  Sex: Male

DRUGS (7)
  1. PEG-INTERFERON ALFA 2A (RO 25-8310) [Suspect]
     Route: 058
     Dates: start: 20040301
  2. RIBAVIRIN [Suspect]
     Route: 048
     Dates: start: 20040301
  3. AMANTADINE HCL [Suspect]
     Route: 048
     Dates: start: 20040301
  4. CAMPRAL [Concomitant]
     Dates: start: 20030615
  5. SEROXAT [Concomitant]
     Dates: start: 20031015
  6. LORAZEPAM [Concomitant]
     Dates: start: 20030615
  7. VALIUM [Concomitant]

REACTIONS (1)
  - TINNITUS [None]
